FAERS Safety Report 16016019 (Version 1)
Quarter: 2019Q1

REPORT INFORMATION
  Report Type: Spontaneous
  Country: SE (occurrence: SE)
  Receive Date: 20190228
  Receipt Date: 20190228
  Transmission Date: 20190418
  Serious: Yes (Other)
  Sender: FDA-Public Use
  Company Number: SE-ACCORD-109873

PATIENT
  Age: 76 Year
  Sex: Female

DRUGS (2)
  1. BEHEPAN [Concomitant]
     Active Substance: HYDROXOCOBALAMIN
     Dosage: 1 MG/ML
     Dates: start: 20180801, end: 20180801
  2. ZOLEDRONIC ACID [Suspect]
     Active Substance: ZOLEDRONIC ACID
     Indication: OSTEOPOROSIS
     Dates: start: 20180801, end: 20180801

REACTIONS (3)
  - Oliguria [Not Recovered/Not Resolved]
  - Circumstance or information capable of leading to medication error [Unknown]
  - Anuria [Not Recovered/Not Resolved]

NARRATIVE: CASE EVENT DATE: 201808
